FAERS Safety Report 10014409 (Version 2)
Quarter: 2014Q1

REPORT INFORMATION
  Report Type: Spontaneous
  Country: FR (occurrence: FR)
  Receive Date: 20140317
  Receipt Date: 20140317
  Transmission Date: 20141002
  Serious: Yes (Hospitalization, Disabling)
  Sender: FDA-Public Use
  Company Number: FR-BRISTOL-MYERS SQUIBB COMPANY-17312067

PATIENT
  Age: 63 Year
  Sex: Female

DRUGS (5)
  1. ABILIFY TABS 15 MG [Suspect]
     Indication: BIPOLAR DISORDER
     Dosage: RED TO 10MG-OCT2011?MAY-SEP12-10MG?SEP-OCT12-15MG?OCT12-10MG
     Route: 048
     Dates: start: 201106
  2. TERALITHE [Suspect]
     Indication: BIPOLAR DISORDER
     Dosage: 1DF= INITIAL DOSE UNK; DOSE RED TO 600MG?RED TO 800MG-SEP2012, EARLIER 800MG?ALSO AS CONMED
     Route: 048
     Dates: start: 200803
  3. TEGRETOL [Concomitant]
     Dosage: TABS
     Route: 048
  4. IMOVANE [Concomitant]
     Indication: INSOMNIA
     Dosage: TABS
     Route: 048
  5. STILNOX [Concomitant]
     Indication: SLEEP DISORDER
     Dosage: TABS
     Route: 048

REACTIONS (3)
  - Tremor [Unknown]
  - Vision blurred [Unknown]
  - Mental disorder [Unknown]
